FAERS Safety Report 5266652-1 (Version None)
Quarter: 2007Q1

REPORT INFORMATION
  Report Type: 
  Country: None (occurrence: None)
  Receive Date: 20070312
  Receipt Date: 20070226
  Transmission Date: 20070707
  Serious: Yes (Death)
  Sender: FDA-Public Use
  Company Number: CIP07000441

PATIENT
  Age: 57 Year
  Sex: Female

DRUGS (3)
  1. RISEDRONATE SODIUM [Suspect]
     Indication: OSTEOPOROSIS
     Dosage: 2.5 MG DAILY, ORAL
     Route: 048
     Dates: start: 20061204, end: 20070107
  2. ONEALFA (ALFACALCIDOL) [Suspect]
     Indication: OSTEOPOROSIS
     Dosage: 1 UG, ORAL
     Route: 048
     Dates: start: 20061204, end: 20070107
  3. BRUFEN /00102901/ (IBUPROFEN) [Suspect]
     Indication: BACK PAIN
     Dosage: 600 MG, ORAL
     Route: 048
     Dates: start: 20061204, end: 20070107

REACTIONS (4)
  - HEPATIC FAILURE [None]
  - HEPATITIS FULMINANT [None]
  - JAUNDICE [None]
  - MALAISE [None]
